FAERS Safety Report 19060753 (Version 3)
Quarter: 2022Q1

REPORT INFORMATION
  Report Type: Spontaneous
  Country: GB (occurrence: GB)
  Receive Date: 20210325
  Receipt Date: 20220218
  Transmission Date: 20220423
  Serious: Yes (Other)
  Sender: FDA-Public Use
  Company Number: GB-GLAXOSMITHKLINE-GB2021EME066629

PATIENT
  Sex: Female

DRUGS (4)
  1. NUCALA [Suspect]
     Active Substance: MEPOLIZUMAB
     Indication: Asthma
     Dosage: 100 MG, Z EVERY 4 WEEKS
     Route: 058
  2. VENTOLIN [Suspect]
     Active Substance: ALBUTEROL SULFATE
     Indication: Product used for unknown indication
     Dosage: 2 PUFF(S), BID
  3. VENTOLIN [Suspect]
     Active Substance: ALBUTEROL SULFATE
     Dosage: 2 PUFF(S), TID
  4. BECLOMETHASONE\FORMOTEROL [Suspect]
     Active Substance: BECLOMETHASONE\FORMOTEROL
     Indication: Product used for unknown indication
     Dosage: UNK, 200/6

REACTIONS (23)
  - Lower respiratory tract infection [Not Recovered/Not Resolved]
  - Bronchiectasis [Unknown]
  - Syncope [Unknown]
  - Cholesteatoma [Unknown]
  - Diplopia [Unknown]
  - Headache [Unknown]
  - Cerebral cyst [Unknown]
  - Impaired driving ability [Unknown]
  - Cough [Unknown]
  - Dyspnoea exertional [Unknown]
  - Chest discomfort [Unknown]
  - Stress [Unknown]
  - Sputum discoloured [Unknown]
  - Middle insomnia [Unknown]
  - Injection site pain [Unknown]
  - Throat irritation [Unknown]
  - Productive cough [Unknown]
  - Disturbance in attention [Unknown]
  - Emotional distress [Unknown]
  - Dizziness [Unknown]
  - Insomnia [Unknown]
  - Sinonasal obstruction [Unknown]
  - Nasal cyst [Unknown]

NARRATIVE: CASE EVENT DATE: 20210101
